FAERS Safety Report 25305583 (Version 1)
Quarter: 2025Q2

REPORT INFORMATION
  Report Type: Spontaneous
  Country: GB (occurrence: GB)
  Receive Date: 20250513
  Receipt Date: 20250513
  Transmission Date: 20250716
  Serious: Yes (Hospitalization, Other)
  Sender: AMGEN
  Company Number: GB-AMGEN-GBRSP2025089524

PATIENT
  Age: 34 Year
  Sex: Male
  Weight: 85 kg

DRUGS (9)
  1. USTEKINUMAB [Suspect]
     Active Substance: USTEKINUMAB
     Indication: Colitis ulcerative
     Route: 065
     Dates: start: 20241025
  2. CALCIUM CARBONATE\CHOLECALCIFEROL [Concomitant]
     Active Substance: CALCIUM CARBONATE\CHOLECALCIFEROL
  3. LANSOPRAZOLE [Concomitant]
     Active Substance: LANSOPRAZOLE
  4. MESALAMINE [Concomitant]
     Active Substance: MESALAMINE
  5. PENTASA [Concomitant]
     Active Substance: MESALAMINE
  6. PREDNISOLONE [Concomitant]
     Active Substance: PREDNISOLONE
     Indication: Colitis ulcerative
     Dates: start: 20241027
  7. APIXABAN [Concomitant]
     Active Substance: APIXABAN
     Indication: Deep vein thrombosis
     Dates: start: 20250210
  8. HYDROCORTISONE [Concomitant]
     Active Substance: HYDROCORTISONE
  9. IRON [Concomitant]
     Active Substance: IRON

REACTIONS (1)
  - Deep vein thrombosis [Recovering/Resolving]

NARRATIVE: CASE EVENT DATE: 20250210
